FAERS Safety Report 20987377 (Version 4)
Quarter: 2023Q2

REPORT INFORMATION
  Report Type: Spontaneous
  Country: US (occurrence: US)
  Receive Date: 20220621
  Receipt Date: 20230420
  Transmission Date: 20230722
  Serious: No
  Sender: FDA-Public Use
  Company Number: US-BRISTOL-MYERS SQUIBB COMPANY-2022-056703

PATIENT
  Age: 65 Year
  Sex: Female

DRUGS (2)
  1. ORENCIA [Suspect]
     Active Substance: ABATACEPT
     Indication: Rheumatoid arthritis
     Route: 058
     Dates: start: 20220525
  2. ORENCIA [Suspect]
     Active Substance: ABATACEPT
     Dosage: WEEKLY
     Route: 058
     Dates: start: 20220525

REACTIONS (12)
  - Arthralgia [Unknown]
  - Bone pain [Unknown]
  - Joint swelling [Unknown]
  - Administration site joint pain [Unknown]
  - Abdominal pain upper [Unknown]
  - Eye pruritus [Unknown]
  - Lacrimation increased [Unknown]
  - Rhinorrhoea [Unknown]
  - Back pain [Unknown]
  - Musculoskeletal stiffness [Unknown]
  - Pain in extremity [Unknown]
  - Gait inability [Unknown]
